FAERS Safety Report 5075564-8 (Version None)
Quarter: 2006Q3

REPORT INFORMATION
  Report Type: 
  Country: None (occurrence: None)
  Receive Date: 20060809
  Receipt Date: 20060801
  Transmission Date: 20061208
  Serious: Yes (Hospitalization)
  Sender: FDA-Public Use
  Company Number: PHBS2006FI11500

PATIENT
  Age: 76 Year
  Sex: Female

DRUGS (9)
  1. EXELON [Suspect]
     Dosage: 6 MG/DAY
     Route: 048
  2. ORMOX [Concomitant]
     Dosage: 20 MG/DAY
     Route: 048
  3. OXEPAM [Concomitant]
     Dosage: 15 MG/DAY
     Route: 048
  4. DIGOXIN [Concomitant]
     Dosage: 0.125 MG/DAY
     Route: 048
  5. THYROXIN [Concomitant]
     Dosage: 25 MG/DAY
     Route: 048
  6. CITALOPRAM [Concomitant]
     Dosage: 20 MG/DAY
     Route: 048
  7. MAREVAN [Concomitant]
     Route: 048
  8. FURESIS COMP [Concomitant]
     Route: 048
  9. SOTALOL HCL [Concomitant]
     Dosage: 80 MG/DAY
     Route: 048

REACTIONS (3)
  - ABDOMINAL PAIN UPPER [None]
  - GAMMA-GLUTAMYLTRANSFERASE INCREASED [None]
  - HEPATOMEGALY [None]
